FAERS Safety Report 7326131-4 (Version None)
Quarter: 2011Q1

REPORT INFORMATION
  Report Type: 
  Country: None (occurrence: None)
  Receive Date: 20110302
  Receipt Date: 20110203
  Transmission Date: 20110831
  Serious: No
  Sender: FDA-Public Use
  Company Number: US-B.I. PHARMACEUTICALS,INC./RIDGEFIELD-2011-BP-03549BP

PATIENT
  Sex: Female

DRUGS (8)
  1. SOTALOL HYDROCHLORIDE [Suspect]
     Indication: ATRIAL FIBRILLATION
     Dosage: 240 MG
     Route: 048
  2. PRADAXA [Suspect]
     Indication: ATRIAL FIBRILLATION
     Dosage: 300 MG
     Route: 048
     Dates: start: 20110124
  3. CARDIZEM [Concomitant]
     Dosage: 180 MG
     Route: 048
  4. BONIVA [Concomitant]
     Indication: OSTEOPOROSIS
     Dosage: 150 MG
     Route: 048
  5. ACIPHEX [Concomitant]
     Indication: GASTROOESOPHAGEAL REFLUX DISEASE
     Dosage: 20 MG
     Route: 048
  6. NITROFUR MAC [Concomitant]
     Indication: CYSTITIS
     Dosage: 50 MG
     Route: 048
  7. CRESTOR [Concomitant]
     Indication: BLOOD CHOLESTEROL INCREASED
     Dosage: 5 MG
     Route: 048
  8. BIOTIN [Concomitant]
     Indication: PROPHYLAXIS
     Dosage: 1000 MCG
     Route: 048

REACTIONS (2)
  - DIZZINESS [None]
  - NAUSEA [None]
